FAERS Safety Report 22247427 (Version 4)
Quarter: 2023Q4

REPORT INFORMATION
  Report Type: Report from Study
  Country: US (occurrence: US)
  Receive Date: 20230425
  Receipt Date: 20231024
  Transmission Date: 20240110
  Serious: Yes (Hospitalization)
  Sender: FDA-Public Use
  Company Number: US-REGENERON PHARMACEUTICALS, INC.-2023-054712

PATIENT
  Age: 63 Year
  Sex: Male

DRUGS (24)
  1. INVESTIGATIONAL PRODUCT [Suspect]
     Active Substance: INVESTIGATIONAL PRODUCT
     Indication: Prostate cancer
     Dosage: 100 MG, WEEKLY, DOSE EXPANSION DL7
     Route: 042
     Dates: start: 20230228, end: 20230410
  2. INVESTIGATIONAL PRODUCT [Suspect]
     Active Substance: INVESTIGATIONAL PRODUCT
     Dosage: 100 MG, WEEKLY, DOSE EXPANSION DL7
     Route: 042
     Dates: start: 20230424, end: 20230612
  3. INVESTIGATIONAL PRODUCT [Suspect]
     Active Substance: INVESTIGATIONAL PRODUCT
     Dosage: 100 MG, WEEKLY, DOSE EXPANSION DL7
     Route: 042
     Dates: start: 20230703, end: 20230703
  4. INVESTIGATIONAL PRODUCT [Suspect]
     Active Substance: INVESTIGATIONAL PRODUCT
     Dosage: 100 MG, WEEKLY, DOSE EXPANSION DL7
     Route: 042
     Dates: start: 20230710, end: 20230710
  5. INVESTIGATIONAL PRODUCT [Suspect]
     Active Substance: INVESTIGATIONAL PRODUCT
     Dosage: 100 MG, WEEKLY, DOSE EXPANSION DL7
     Route: 042
     Dates: start: 20230719
  6. CEMIPLIMAB [Suspect]
     Active Substance: CEMIPLIMAB
     Indication: Prostate cancer
     Dosage: 350 MG, Q3W
     Route: 042
     Dates: start: 20230321
  7. CEMIPLIMAB [Suspect]
     Active Substance: CEMIPLIMAB
     Dosage: 350 MG, Q3W
     Route: 042
     Dates: start: 20230321
  8. TYLENOL [Concomitant]
     Active Substance: ACETAMINOPHEN
     Indication: Pyrexia
     Dosage: 650 MG, AS NECESSARY
     Route: 048
     Dates: start: 20230321, end: 20230321
  9. TYLENOL [Concomitant]
     Active Substance: ACETAMINOPHEN
     Indication: Cytokine release syndrome
     Dosage: 650 MG, Q3W
     Route: 048
     Dates: start: 20230410
  10. TYLENOL [Concomitant]
     Active Substance: ACETAMINOPHEN
     Dosage: 650 MG, Q3W
     Route: 048
     Dates: start: 20230410
  11. SODIUM CHLORIDE [Concomitant]
     Active Substance: SODIUM CHLORIDE
     Indication: Hyponatraemia
     Dosage: 1 L, OTO
     Route: 042
     Dates: start: 20230410, end: 20230410
  12. IBUPROFEN [Concomitant]
     Active Substance: IBUPROFEN
     Indication: Back pain
     Dosage: 800 MG, AS NECESSARY
     Route: 048
     Dates: start: 202207, end: 20230409
  13. IBUPROFEN [Concomitant]
     Active Substance: IBUPROFEN
     Indication: Cancer pain
     Dosage: 800 MG, BID
     Route: 048
     Dates: start: 20230410
  14. IBUPROFEN [Concomitant]
     Active Substance: IBUPROFEN
     Dosage: 800 MG, BID
     Route: 048
     Dates: start: 20230410
  15. ASCORBIC ACID [Concomitant]
     Active Substance: ASCORBIC ACID
     Indication: Product used for unknown indication
     Dosage: 1000 MG, QD
     Route: 048
     Dates: start: 20190821
  16. ASCORBIC ACID [Concomitant]
     Active Substance: ASCORBIC ACID
     Dosage: 1000 MG, QD
     Route: 048
     Dates: start: 20190821
  17. CALCIUM CARBONATE [Concomitant]
     Active Substance: CALCIUM CARBONATE
     Indication: Supplementation therapy
     Dosage: 1000 MG, QD
     Route: 048
     Dates: start: 20220302
  18. CALCIUM CARBONATE [Concomitant]
     Active Substance: CALCIUM CARBONATE
     Dosage: 1000 MG, QD
     Route: 048
     Dates: start: 20220302
  19. CHOLECALCIFEROL [Concomitant]
     Active Substance: CHOLECALCIFEROL
     Indication: Supplementation therapy
     Dosage: 5000 UINT, QD
     Route: 048
     Dates: start: 20220821
  20. IRON + FOLIC ACID [FOLIC ACID;IRON] [Concomitant]
     Indication: Supplementation therapy
     Dosage: 1 CAPSULE,QD
     Route: 048
     Dates: start: 20220331
  21. FERROUS SULFATE [Concomitant]
     Active Substance: FERROUS SULFATE
     Indication: Supplementation therapy
     Dosage: 325 MG, TID
     Route: 048
     Dates: start: 202303
  22. FAMOTIDINE [Concomitant]
     Active Substance: FAMOTIDINE
     Indication: Cytokine release syndrome
     Dosage: 20 MG, Q3W
     Route: 048
     Dates: start: 20230410
  23. FAMOTIDINE [Concomitant]
     Active Substance: FAMOTIDINE
     Dosage: 20 MG, Q3W
     Route: 048
     Dates: start: 20230410
  24. XGEVA [Concomitant]
     Active Substance: DENOSUMAB
     Indication: Supportive care
     Dosage: 120 MG, QMO
     Route: 058
     Dates: start: 20230302

REACTIONS (1)
  - Uveitis [Recovered/Resolved]

NARRATIVE: CASE EVENT DATE: 20230415
